FAERS Safety Report 25728360 (Version 1)
Quarter: 2025Q3

REPORT INFORMATION
  Report Type: Spontaneous
  Country: US (occurrence: US)
  Receive Date: 20250826
  Receipt Date: 20250826
  Transmission Date: 20251020
  Serious: Yes (Other)
  Sender: MYLAN
  Company Number: US-MYLANLABS-2025M1070743

PATIENT
  Age: 80 Year
  Sex: Male
  Weight: 82.2 kg

DRUGS (7)
  1. AMIODARONE [Suspect]
     Active Substance: AMIODARONE
     Indication: Atrial fibrillation
     Dosage: 200 MILLIGRAM, BID
  2. AMIODARONE [Suspect]
     Active Substance: AMIODARONE
  3. PREDNISONE [Suspect]
     Active Substance: PREDNISONE
     Indication: Hyperthyroidism
     Dosage: 40 MILLIGRAM, QD
  4. PREDNISONE [Suspect]
     Active Substance: PREDNISONE
     Dosage: 10 MILLIGRAM, QD
  5. LEVOTHYROXINE [Suspect]
     Active Substance: LEVOTHYROXINE
     Indication: Blood thyroid stimulating hormone increased
     Dosage: 25 MICROGRAM, QD
  6. LEVOTHYROXINE [Suspect]
     Active Substance: LEVOTHYROXINE
     Dosage: 88 MICROGRAM, QD, STOPPED AND RESTARTED AGAIN WITH INCREASED DOSE
  7. DRONEDARONE [Concomitant]
     Active Substance: DRONEDARONE
     Indication: Atrial fibrillation

REACTIONS (5)
  - Hyperthyroidism [Recovered/Resolved]
  - Dyspnoea [Unknown]
  - Hypervolaemia [Unknown]
  - Palpitations [Unknown]
  - Weight increased [Unknown]
